FAERS Safety Report 4564409-8 (Version None)
Quarter: 2005Q1

REPORT INFORMATION
  Report Type: 
  Country: None (occurrence: None)
  Receive Date: 20050128
  Receipt Date: 20050120
  Transmission Date: 20050727
  Serious: Yes (Other)
  Sender: FDA-Public Use
  Company Number: US-JNJFOC-20041005281

PATIENT
  Sex: Male

DRUGS (2)
  1. RISPERDAL [Suspect]
     Indication: DEVELOPMENTAL DELAY
     Route: 049
  2. CONCERTA [Concomitant]
     Route: 049

REACTIONS (1)
  - LEUKOPENIA [None]
